FAERS Safety Report 6911221-8 (Version None)
Quarter: 2010Q3

REPORT INFORMATION
  Report Type: 
  Country: None (occurrence: None)
  Receive Date: 20100806
  Receipt Date: 20080619
  Transmission Date: 20110219
  Serious: Yes (Hospitalization)
  Sender: FDA-Public Use
  Company Number: DE-ABBOTT-10P-062-0660387-00

PATIENT
  Age: 63 Year
  Sex: Male

DRUGS (8)
  1. AKINETON FOR INJECTION [Suspect]
     Indication: PLEUROTHOTONUS
     Dosage: 1 SEPARATE DOSE
     Route: 030
     Dates: start: 20080617, end: 20080617
  2. RISPERDAL [Suspect]
     Indication: DEMENTIA OF THE ALZHEIMER'S TYPE, WITH DEPRESSED MOOD
     Dosage: 1 SEPARATE DOSE, FILM-COATED TABLET
     Route: 048
     Dates: start: 20080617, end: 20080617
  3. ATACAND D [Concomitant]
     Indication: HYPERTENSION
     Route: 048
     Dates: start: 20060101
  4. GABAPENTIN [Concomitant]
     Indication: GRAND MAL CONVULSION
     Route: 048
     Dates: start: 20070701
  5. HYDROCHLOROTHIAZIDE [Concomitant]
     Indication: HYPERTENSION
     Route: 048
     Dates: start: 20060101
  6. CIPRAMIL [Concomitant]
     Indication: DEMENTIA OF THE ALZHEIMER'S TYPE, WITH DEPRESSED MOOD
     Route: 048
     Dates: start: 20080201
  7. SEROQUEL [Concomitant]
     Indication: DEMENTIA OF THE ALZHEIMER'S TYPE, WITH DEPRESSED MOOD
     Dosage: 25-50-25 MG, FILM-COATED TABLET
     Route: 048
     Dates: start: 20070101
  8. SEROQUEL [Concomitant]
     Dosage: PROLONGED-RELEASE TABLET
     Route: 048
     Dates: start: 20070101

REACTIONS (2)
  - HYPERSENSITIVITY [None]
  - PLEUROTHOTONUS [None]
